FAERS Safety Report 13450685 (Version 1)
Quarter: 2017Q2

REPORT INFORMATION
  Report Type: Spontaneous
  Country: FR (occurrence: FR)
  Receive Date: 20170418
  Receipt Date: 20170418
  Transmission Date: 20170830
  Serious: Yes (Hospitalization)
  Sender: FDA-Public Use
  Company Number: FR-ROCHE-1918833

PATIENT
  Age: 58 Year
  Sex: Female

DRUGS (10)
  1. AVASTIN [Suspect]
     Active Substance: BEVACIZUMAB
     Indication: OVARIAN EPITHELIAL CANCER
     Dosage: SOLUTION FOR DILUTION FOR INFUSION
     Route: 041
     Dates: start: 20160224, end: 20160610
  2. LOVENOX [Suspect]
     Active Substance: ENOXAPARIN SODIUM
     Indication: THROMBOSIS PROPHYLAXIS
     Dosage: SOLUTION FOR INJECTION IN PREFILLED SYRINGE
     Route: 058
     Dates: start: 20160624
  3. LEXOMIL [Concomitant]
     Active Substance: BROMAZEPAM
     Dosage: FOUR-SCORED TABLET
     Route: 048
     Dates: start: 20160212, end: 20160301
  4. TAXOL [Concomitant]
     Active Substance: PACLITAXEL
     Route: 065
  5. LEXOMIL [Concomitant]
     Active Substance: BROMAZEPAM
     Dosage: FOUR-SCORED TABLET, 0.25-0.25-0.25-0.25
     Route: 048
     Dates: start: 20160212, end: 20160301
  6. PAROXETINE. [Concomitant]
     Active Substance: PAROXETINE
     Route: 048
  7. THERALENE (FRANCE) [Concomitant]
     Active Substance: TRIMEPRAZINE
     Route: 048
  8. AVASTIN [Suspect]
     Active Substance: BEVACIZUMAB
     Dosage: SOLUTION FOR DILUTION FOR INFUSION
     Route: 041
     Dates: start: 20160701
  9. PARAPLATIN [Concomitant]
     Active Substance: CARBOPLATIN
  10. SEROPLEX [Concomitant]
     Active Substance: ESCITALOPRAM OXALATE
     Route: 048
     Dates: start: 20160212

REACTIONS (1)
  - Abnormal behaviour [Not Recovered/Not Resolved]

NARRATIVE: CASE EVENT DATE: 201701
